FAERS Safety Report 14828999 (Version 1)
Quarter: 2018Q2

REPORT INFORMATION
  Report Type: Spontaneous
  Country: US (occurrence: US)
  Receive Date: 20180407
  Receipt Date: 20180407
  Transmission Date: 20180711
  Serious: Yes (Disabling)
  Sender: FDA-Public Use
  Company Number: None

PATIENT
  Age: 38 Year
  Sex: Female

DRUGS (3)
  1. LEVAQUIN [Concomitant]
     Active Substance: LEVOFLOXACIN
  2. BOTOX [Suspect]
     Active Substance: ONABOTULINUMTOXINA
     Indication: SKIN WRINKLING
     Dates: start: 20171109
  3. KFLEX [Concomitant]

REACTIONS (6)
  - Dysphagia [None]
  - Headache [None]
  - Paraesthesia [None]
  - Dry eye [None]
  - Chest pain [None]
  - Trigeminal neuralgia [None]

NARRATIVE: CASE EVENT DATE: 20171110
